FAERS Safety Report 18687434 (Version 1)
Quarter: 2020Q4

REPORT INFORMATION
  Report Type: Spontaneous
  Country: US (occurrence: US)
  Receive Date: 20201231
  Receipt Date: 20201231
  Transmission Date: 20210114
  Serious: No
  Sender: FDA-Public Use
  Company Number: NVSC2020US339339

PATIENT
  Sex: Female

DRUGS (1)
  1. ALPRAZOLAM. [Suspect]
     Active Substance: ALPRAZOLAM
     Indication: PRODUCT USED FOR UNKNOWN INDICATION
     Dosage: 0.5 MG, TID (1 1/2 TABLETS EVERY 5 1/2 HOURS DEPENDING ON HOW SHE FELT)
     Route: 065

REACTIONS (6)
  - Constipation [Unknown]
  - Malaise [Unknown]
  - Drug ineffective [Unknown]
  - Sedation [Unknown]
  - Hyperhidrosis [Unknown]
  - Confusional state [Unknown]
